FAERS Safety Report 7450859-9 (Version None)
Quarter: 2011Q2

REPORT INFORMATION
  Report Type: 
  Country: None (occurrence: None)
  Receive Date: 20110422
  Receipt Date: 20110412
  Transmission Date: 20111010
  Serious: Yes (Hospitalization)
  Sender: FDA-Public Use
  Company Number: TCI2011A02533

PATIENT
  Age: 47 Year
  Sex: Male

DRUGS (2)
  1. ALCOHOL [Concomitant]
  2. LANSOPRAZOLE [Suspect]

REACTIONS (7)
  - HYPOPROTEINAEMIA [None]
  - HYPOALBUMINAEMIA [None]
  - COLITIS COLLAGENOUS [None]
  - WEIGHT DECREASED [None]
  - OEDEMA PERIPHERAL [None]
  - ANAEMIA MACROCYTIC [None]
  - DIARRHOEA [None]
